FAERS Safety Report 9260144 (Version 3)
Quarter: 2013Q2

REPORT INFORMATION
  Report Type: Report from Study
  Country: PH (occurrence: PH)
  Receive Date: 20130429
  Receipt Date: 20130530
  Transmission Date: 20140414
  Serious: Yes (Other)
  Sender: FDA-Public Use
  Company Number: PHHY2012PH128285

PATIENT
  Age: 63 Year
  Sex: Female

DRUGS (2)
  1. GLIVEC [Suspect]
     Indication: CHRONIC MYELOID LEUKAEMIA
     Dosage: 400 MG, QD
     Route: 048
     Dates: start: 201104
  2. GLIVEC [Suspect]
     Dosage: 300 MG, QD
     Route: 048

REACTIONS (4)
  - Bone marrow failure [Unknown]
  - Pancytopenia [Unknown]
  - Chronic myeloid leukaemia [Unknown]
  - Therapeutic response decreased [Unknown]
